FAERS Safety Report 9234026 (Version 1)
Quarter: 2013Q2

REPORT INFORMATION
  Report Type: Spontaneous
  Country: US (occurrence: US)
  Receive Date: 20130416
  Receipt Date: 20130416
  Transmission Date: 20140414
  Serious: No
  Sender: FDA-Public Use
  Company Number: US-PFIZER INC-2013115278

PATIENT
  Age: 76 Year
  Sex: Male

DRUGS (1)
  1. ADVIL ALLERGY AND CONGESTION RELIEF [Suspect]
     Dosage: UNK
     Dates: start: 201303

REACTIONS (4)
  - Drug effect incomplete [Unknown]
  - Sneezing [Unknown]
  - Headache [Unknown]
  - Rhinorrhoea [Unknown]
